FAERS Safety Report 8024302-5 (Version None)
Quarter: 2012Q1

REPORT INFORMATION
  Report Type: 
  Country: None (occurrence: None)
  Receive Date: 20120105
  Receipt Date: 20111221
  Transmission Date: 20120608
  Serious: Yes (Hospitalization)
  Sender: FDA-Public Use
  Company Number: IT-CELGENEUS-083-21880-11101736

PATIENT
  Sex: Male

DRUGS (3)
  1. REVLIMID [Suspect]
  2. ENALAPRIL MALEATE [Concomitant]
     Indication: HYPERTENSION
     Dosage: 20MG + 12.5MG
     Route: 065
     Dates: start: 20020101
  3. REVLIMID [Suspect]
     Dosage: 10 MILLIGRAM
     Route: 048
     Dates: start: 20080805, end: 20100624

REACTIONS (1)
  - RENAL ONCOCYTOMA [None]
